FAERS Safety Report 4939893-8 (Version None)
Quarter: 2006Q1

REPORT INFORMATION
  Report Type: 
  Country: None (occurrence: None)
  Receive Date: 20060310
  Receipt Date: 20060302
  Transmission Date: 20060701
  Serious: Yes (Other)
  Sender: FDA-Public Use
  Company Number: US-GLAXOSMITHKLINE-A0596119A

PATIENT
  Age: 51 Year
  Sex: Female
  Weight: 65.9 kg

DRUGS (2)
  1. IMITREX [Suspect]
     Indication: MIGRAINE
     Route: 058
  2. MAXALT-MLT [Concomitant]
     Indication: MIGRAINE

REACTIONS (11)
  - ABNORMAL BEHAVIOUR [None]
  - AMNESIA [None]
  - CEREBROVASCULAR SPASM [None]
  - CONFUSIONAL STATE [None]
  - DISORIENTATION [None]
  - DISTURBANCE IN ATTENTION [None]
  - FATIGUE [None]
  - FEELING ABNORMAL [None]
  - HEADACHE [None]
  - INJECTION SITE URTICARIA [None]
  - SINUSITIS [None]
